FAERS Safety Report 15822330 (Version 2)
Quarter: 2019Q1

REPORT INFORMATION
  Report Type: Report from Study
  Country: BR (occurrence: BR)
  Receive Date: 20190114
  Receipt Date: 20190212
  Transmission Date: 20190417
  Serious: Yes (Other)
  Sender: FDA-Public Use
  Company Number: PHHY2019BR004241

PATIENT
  Age: 81 Year
  Sex: Female
  Weight: 56 kg

DRUGS (1)
  1. ACLASTA [Suspect]
     Active Substance: ZOLEDRONIC ACID
     Indication: OSTEOPOROSIS
     Dosage: 1 DF, Q12MO
     Route: 042
     Dates: start: 20190104

REACTIONS (11)
  - Eating disorder [Recovering/Resolving]
  - Malaise [Not Recovered/Not Resolved]
  - Hypocalcaemia [Recovering/Resolving]
  - Seizure [Recovering/Resolving]
  - Pyrexia [Recovering/Resolving]
  - Tremor [Recovering/Resolving]
  - Anal incontinence [Recovering/Resolving]
  - Cardiac disorder [Not Recovered/Not Resolved]
  - Vomiting [Recovering/Resolving]
  - Asthenia [Recovering/Resolving]
  - Delirium [Unknown]

NARRATIVE: CASE EVENT DATE: 20190104
